FAERS Safety Report 18345524 (Version 1)
Quarter: 2020Q4

REPORT INFORMATION
  Report Type: Report from Study
  Country: DE (occurrence: DE)
  Receive Date: 20201005
  Receipt Date: 20201005
  Transmission Date: 20210114
  Serious: Yes (Other)
  Sender: FDA-Public Use
  Company Number: DE-SA-2019SA253315

PATIENT

DRUGS (9)
  1. ISATUXIMAB [Suspect]
     Active Substance: ISATUXIMAB
     Dosage: 10 MG/KG, QW (START TIME: 09:30 AND STOP TIME: 12:15)
     Route: 042
     Dates: start: 20190717, end: 20190717
  2. BORTEZOMIB. [Suspect]
     Active Substance: BORTEZOMIB
     Indication: PLASMA CELL MYELOMA
     Dosage: 1.3 MG/M2, D1, D4, D8, D11, D22, D25, D29, D32 (START TIME: 15:30)
     Route: 058
     Dates: start: 20190717, end: 20190717
  3. RIVAROXABAN [Concomitant]
     Active Substance: RIVAROXABAN
     Dosage: DOSAGE (TOTAL DAILY DOSE): 20 MG
     Route: 048
     Dates: start: 2015, end: 20191206
  4. DEXAMETHASONE. [Suspect]
     Active Substance: DEXAMETHASONE
     Indication: PLASMA CELL MYELOMA
     Dosage: 20 MG, D1, D4, D8, D11, D15, D22, D25, D29, D32 (START TIME: 08:45)
     Route: 042
     Dates: start: 20190717, end: 20190717
  5. COTRIMOXAZOL [Concomitant]
     Active Substance: SULFAMETHOXAZOLE\TRIMETHOPRIM
     Dosage: DOSAGE (TOTAL DAILY DOSE): 960 MG
     Route: 048
     Dates: start: 2019
  6. FOLIC ACID. [Concomitant]
     Active Substance: FOLIC ACID
     Indication: PROPHYLAXIS
     Dosage: DOSAGE (TOTAL DAILY DOSE): 5 MG
     Route: 048
     Dates: start: 2019
  7. ISATUXIMAB [Suspect]
     Active Substance: ISATUXIMAB
     Indication: PLASMA CELL MYELOMA
     Dosage: 10 MG/KG, QW (START TIME: 13:05 AND STOP TIME: 15:30)
     Route: 042
     Dates: start: 20190717, end: 20190717
  8. LENALIDOMIDE [Suspect]
     Active Substance: LENALIDOMIDE
     Indication: PLASMA CELL MYELOMA
     Dosage: 25 MG, QD (START TIME: 22:05)
     Route: 048
     Dates: start: 20190717, end: 20190717
  9. ACICLOVIR [Concomitant]
     Active Substance: ACYCLOVIR
     Indication: PROPHYLAXIS
     Dosage: DOSAGE (TOTAL DAILY DOSE): 400 MG
     Route: 048
     Dates: start: 20190717

REACTIONS (2)
  - Chest discomfort [Recovered/Resolved]
  - Infusion related reaction [Recovered/Resolved]

NARRATIVE: CASE EVENT DATE: 20190717
